FAERS Safety Report 6641411-3 (Version None)
Quarter: 2010Q1

REPORT INFORMATION
  Report Type: 
  Country: None (occurrence: None)
  Receive Date: 20100317
  Receipt Date: 20100317
  Transmission Date: 20100710
  Serious: Yes (Hospitalization)
  Sender: FDA-Public Use
  Company Number: None

PATIENT
  Age: 80 Year
  Sex: Male
  Weight: 79 kg

DRUGS (2)
  1. ENOXAPARIN SODIUM [Suspect]
     Indication: CARDIAC VALVE DISEASE
     Dosage: 80 MG BID SQ
     Route: 058
     Dates: start: 20100305, end: 20100311
  2. WARFARIN SODIUM [Suspect]
     Indication: CARDIAC VALVE DISEASE
     Dosage: 7.5 MG EVERY DAY PO
     Route: 048
     Dates: start: 19950217, end: 20100311

REACTIONS (3)
  - HAEMORRHOIDAL HAEMORRHAGE [None]
  - INTERNATIONAL NORMALISED RATIO ABNORMAL [None]
  - RECTAL HAEMORRHAGE [None]
